FAERS Safety Report 7669730-2 (Version None)
Quarter: 2011Q3

REPORT INFORMATION
  Report Type: 
  Country: None (occurrence: None)
  Receive Date: 20110808
  Receipt Date: 20110804
  Transmission Date: 20111222
  Serious: Yes (Other)
  Sender: FDA-Public Use
  Company Number: CH-PFIZER INC-2011179120

PATIENT
  Age: 74 Year
  Sex: Male

DRUGS (2)
  1. PLAVIX [Concomitant]
     Route: 048
  2. ATORVASTATIN CALCIUM [Suspect]
     Dosage: 40 MG, 1X/DAY
     Route: 048
     Dates: start: 20080101

REACTIONS (3)
  - MUSCULAR WEAKNESS [None]
  - INFARCTION [None]
  - HALLUCINATION [None]
